FAERS Safety Report 25416035 (Version 2)
Quarter: 2025Q2

REPORT INFORMATION
  Report Type: Spontaneous
  Country: US (occurrence: US)
  Receive Date: 20250610
  Receipt Date: 20250626
  Transmission Date: 20250717
  Serious: No
  Sender: IPSEN BIOPHARMACEUTICALS, INC.
  Company Number: US-IPSEN Group, Research and Development-2025-12991

PATIENT
  Sex: Female

DRUGS (12)
  1. IQIRVO [Suspect]
     Active Substance: ELAFIBRANOR
     Indication: Primary biliary cholangitis
     Route: 048
     Dates: start: 20250506
  2. ALYACEN 7/7/7 [Concomitant]
     Active Substance: ETHINYL ESTRADIOL\NORETHINDRONE
  3. ATORVASTATIN [Concomitant]
     Active Substance: ATORVASTATIN
  4. GVOKE [Concomitant]
     Active Substance: GLUCAGON
     Route: 050
  5. JENCYCLA [Concomitant]
     Active Substance: NORETHINDRONE
  6. LEVOTHYROXINE [Concomitant]
     Active Substance: LEVOTHYROXINE
  7. LEVOTHYROXINE [Concomitant]
     Active Substance: LEVOTHYROXINE
  8. LIPITOR [Concomitant]
     Active Substance: ATORVASTATIN CALCIUM
  9. NOVOLOG [Concomitant]
     Active Substance: INSULIN ASPART
     Route: 050
  10. URSODIOL [Concomitant]
     Active Substance: URSODIOL
  11. VITAMIN D [Concomitant]
     Active Substance: VITAMIN D NOS
  12. VITAMIN D [Concomitant]
     Active Substance: VITAMIN D NOS

REACTIONS (1)
  - Weight increased [Unknown]
